FAERS Safety Report 9068758 (Version 2)
Quarter: 2013Q1

REPORT INFORMATION
  Report Type: Spontaneous
  Country: AT (occurrence: None)
  Receive Date: 20130122
  Receipt Date: 20130314
  Transmission Date: 20140127
  Serious: Yes (Other)
  Sender: FDA-Public Use
  Company Number: 2013CP000003

PATIENT
  Age: 75 Year
  Sex: Female

DRUGS (2)
  1. PERFALGAN [Suspect]
     Indication: BACK PAIN
     Dosage: 4/1 DAY
     Route: 042
  2. DIPYRONE [Concomitant]

REACTIONS (1)
  - Pain [None]
